FAERS Safety Report 6835628-2 (Version None)
Quarter: 2010Q3

REPORT INFORMATION
  Report Type: 
  Country: None (occurrence: None)
  Receive Date: 20100713
  Receipt Date: 20100707
  Transmission Date: 20110219
  Serious: Yes (Hospitalization, Disabling)
  Sender: FDA-Public Use
  Company Number: FR-WYE-G06207610

PATIENT
  Sex: Male
  Weight: 90 kg

DRUGS (11)
  1. EFFEXOR XR [Suspect]
     Indication: DEPRESSION
     Dosage: 150 MG TOTAL DAILY
     Route: 048
     Dates: start: 20090101, end: 20100501
  2. EFFEXOR XR [Suspect]
     Route: 048
     Dates: start: 20100501, end: 20100531
  3. EFFEXOR XR [Suspect]
     Route: 048
     Dates: start: 20100601, end: 20100607
  4. EFFEXOR XR [Suspect]
     Dosage: 300 MG TOTAL DAILY
     Route: 048
     Dates: start: 20031001
  5. EFFEXOR XR [Suspect]
     Dosage: 225 MG TOTAL DAILY
     Route: 048
     Dates: end: 20090101
  6. AMITRIPTYLINE HCL [Concomitant]
     Indication: INSOMNIA
     Route: 048
     Dates: start: 20081001
  7. PREVISCAN [Concomitant]
     Route: 048
     Dates: start: 20020201
  8. TERCIAN [Concomitant]
     Route: 048
     Dates: start: 20031001
  9. LYSANXIA [Concomitant]
     Route: 048
     Dates: start: 20031001, end: 20100510
  10. ATHYMIL [Concomitant]
     Route: 048
     Dates: start: 20081001
  11. ZOLPIDEM [Concomitant]
     Indication: INSOMNIA
     Route: 048
     Dates: start: 20031001

REACTIONS (8)
  - CHEILITIS [None]
  - DRUG WITHDRAWAL SYNDROME [None]
  - DRY MOUTH [None]
  - FALL [None]
  - FEELING ABNORMAL [None]
  - GAIT DISTURBANCE [None]
  - POLYNEUROPATHY [None]
  - TREMOR [None]
